FAERS Safety Report 19053777 (Version 2)
Quarter: 2022Q1

REPORT INFORMATION
  Report Type: Report from Study
  Country: US (occurrence: US)
  Receive Date: 20210324
  Receipt Date: 20220108
  Transmission Date: 20220424
  Serious: No
  Sender: FDA-Public Use
  Company Number: US-TAKEDA-2021TUS016978

PATIENT
  Age: 84 Year
  Sex: Female
  Weight: 79.819 kg

DRUGS (22)
  1. HUMAN IMMUNOGLOBULIN G [Suspect]
     Active Substance: HUMAN IMMUNOGLOBULIN G
     Indication: Immunodeficiency common variable
     Dosage: 35 GRAM, Q4WEEKS
     Route: 042
     Dates: start: 20160321
  2. ATORVASTATIN CALCIUM [Concomitant]
     Active Substance: ATORVASTATIN CALCIUM
  3. TRAMADOL HYDROCHLORIDE [Concomitant]
     Active Substance: TRAMADOL HYDROCHLORIDE
  4. HCL-ACETAMINOPHEN [Concomitant]
  5. MAPAP ARTHRITIS PAIN [Concomitant]
     Active Substance: ACETAMINOPHEN
  6. FAMOTIDINE [Concomitant]
     Active Substance: FAMOTIDINE
  7. METOPROLOL SUCCINATE [Concomitant]
     Active Substance: METOPROLOL SUCCINATE
  8. BUTABARBITAL\HYOSCYAMINE HYDROBROMIDE\PHENAZOPYRIDINE HYDROCHLORIDE [Concomitant]
     Active Substance: BUTABARBITAL\HYOSCYAMINE HYDROBROMIDE\PHENAZOPYRIDINE HYDROCHLORIDE
  9. DIPHENHYDRAMINE [Concomitant]
     Active Substance: DIPHENHYDRAMINE
  10. LIDOCAINE [Concomitant]
     Active Substance: LIDOCAINE
  11. SODIUM CHLORIDE [Concomitant]
     Active Substance: SODIUM CHLORIDE
  12. EPINEPHRINE [Concomitant]
     Active Substance: EPINEPHRINE
  13. FLUBLOK [Concomitant]
     Active Substance: INFLUENZA A VIRUS A/CALIFORNIA/7/2009 (H1N1) RECOMBINANT HEMAGGLUTININ ANTIGEN\INFLUENZA A VIRUS A/V
  14. VITAMIN B [Concomitant]
     Active Substance: VITAMIN B
  15. PEPCID [Concomitant]
     Active Substance: FAMOTIDINE
  16. BENAZEPRIL HYDROCHLORIDE [Concomitant]
     Active Substance: BENAZEPRIL HYDROCHLORIDE
  17. NEXIUM [Concomitant]
     Active Substance: ESOMEPRAZOLE MAGNESIUM
  18. ASPIRIN [Concomitant]
     Active Substance: ASPIRIN
  19. HYDROCHLOROTHIAZIDE [Concomitant]
     Active Substance: HYDROCHLOROTHIAZIDE
  20. CALCIUM 600 PLUS VITAMIN D3 [Concomitant]
  21. AMBIEN [Concomitant]
     Active Substance: ZOLPIDEM TARTRATE
  22. VITAMIN B COMPLEX [Concomitant]
     Active Substance: CYANOCOBALAMIN\DEXPANTHENOL\NIACINAMIDE\PYRIDOXINE HYDROCHLORIDE\RIBOFLAVIN 5^-PHOSPHATE SODIUM\THIA

REACTIONS (3)
  - Sinusitis [Unknown]
  - Fungal infection [Unknown]
  - Urinary tract infection [Unknown]

NARRATIVE: CASE EVENT DATE: 20210312
